FAERS Safety Report 18570240 (Version 1)
Quarter: 2020Q4

REPORT INFORMATION
  Report Type: Spontaneous
  Country: CA (occurrence: CA)
  Receive Date: 20201202
  Receipt Date: 20201202
  Transmission Date: 20210114
  Serious: Yes (Hospitalization, Other)
  Sender: FDA-Public Use
  Company Number: CA-PFIZER INC-2018076161

PATIENT
  Age: 70 Year
  Sex: Female
  Weight: 94 kg

DRUGS (1)
  1. XELJANZ [Suspect]
     Active Substance: TOFACITINIB CITRATE
     Indication: RHEUMATOID ARTHRITIS
     Dosage: 5 MG, 2X/DAY
     Route: 048
     Dates: start: 20171026, end: 202010

REACTIONS (5)
  - Pulmonary thrombosis [Unknown]
  - Road traffic accident [Unknown]
  - Gastroenteritis viral [Not Recovered/Not Resolved]
  - Hip fracture [Unknown]
  - Osteoarthritis [Unknown]
